FAERS Safety Report 20410101 (Version 3)
Quarter: 2023Q2

REPORT INFORMATION
  Report Type: Report from Study
  Country: US (occurrence: US)
  Receive Date: 20220201
  Receipt Date: 20230530
  Transmission Date: 20230722
  Serious: Yes (Hospitalization)
  Sender: FDA-Public Use
  Company Number: US-KYOWAKIRIN-2022BKK000701

PATIENT

DRUGS (4)
  1. CRYSVITA [Suspect]
     Active Substance: BUROSUMAB-TWZA
     Indication: Hereditary hypophosphataemic rickets
     Dosage: 10 MG (COMBINED WITH 60 MG OF CRYSVITA STRENGTH 30 MG/ML TO ACHIEVE A TOTAL DOSE OF 70 MG), EVERY 28
     Route: 058
     Dates: start: 20200624
  2. CRYSVITA [Suspect]
     Active Substance: BUROSUMAB-TWZA
     Indication: Hereditary hypophosphataemic rickets
     Dosage: 60 MG (COMBINED WITH 10 MG OF CRYSVITA STRENGTH 10 MG/ML TO ACHIEVE A TOTAL DOSE OF 70 MG), EVERY 28
     Route: 058
     Dates: start: 20200624
  3. CRYSVITA [Suspect]
     Active Substance: BUROSUMAB-TWZA
     Dosage: 80 MG, 1X/2 WEEKS
     Route: 058
  4. CRYSVITA [Suspect]
     Active Substance: BUROSUMAB-TWZA
     Indication: Hereditary hypophosphataemic rickets
     Dosage: 80 MG, 1X/4 WEEKS
     Route: 058
     Dates: start: 20200624

REACTIONS (5)
  - Hypoaesthesia [Unknown]
  - Back pain [Unknown]
  - Paraesthesia [Unknown]
  - Pain [Unknown]
  - Therapeutic response shortened [Unknown]
